FAERS Safety Report 11983924 (Version 2)
Quarter: 2016Q1

REPORT INFORMATION
  Report Type: Report from Study
  Country: US (occurrence: US)
  Receive Date: 20160201
  Receipt Date: 20160211
  Transmission Date: 20160526
  Serious: Yes (Hospitalization)
  Sender: FDA-Public Use
  Company Number: US-VERTEX PHARMACEUTICALS-2016-000482

PATIENT
  Sex: Male

DRUGS (4)
  1. PULMOZYME [Concomitant]
     Active Substance: DORNASE ALFA
  2. ALBUTEROL. [Concomitant]
     Active Substance: ALBUTEROL
  3. ORKAMBI [Suspect]
     Active Substance: IVACAFTOR\LUMACAFTOR
     Indication: CYSTIC FIBROSIS
     Dosage: UNK
     Route: 048
     Dates: start: 20151019, end: 20160129
  4. HYPERTONIC SALINE SOLUTION [Concomitant]
     Active Substance: SODIUM CHLORIDE

REACTIONS (1)
  - Infective pulmonary exacerbation of cystic fibrosis [Not Recovered/Not Resolved]
